FAERS Safety Report 8496561-6 (Version None)
Quarter: 2012Q3

REPORT INFORMATION
  Report Type: 
  Country: None (occurrence: None)
  Receive Date: 20120709
  Receipt Date: 20120629
  Transmission Date: 20120928
  Serious: Yes (Hospitalization, Other)
  Sender: FDA-Public Use
  Company Number: JP-CELGENEUS-087-50794-11121521

PATIENT
  Sex: Male
  Weight: 39 kg

DRUGS (23)
  1. VIDAZA [Suspect]
     Dosage: 75 MILLIGRAM/SQ. METER
     Route: 041
     Dates: start: 20110801, end: 20110809
  2. GLYCYRON [Concomitant]
     Indication: LIVER DISORDER
     Route: 048
     Dates: start: 20110630
  3. VIDAZA [Suspect]
     Dosage: 75 MILLIGRAM/SQ. METER
     Route: 041
     Dates: start: 20110622, end: 20110630
  4. MUCOSTA [Concomitant]
     Dosage: 300 MILLIGRAM
     Route: 048
  5. EPINASTINE HYDROCHLORIDE [Concomitant]
     Dosage: 20 MILLIGRAM
     Route: 048
  6. NOVOLIN N [Concomitant]
     Route: 058
     Dates: start: 20110426, end: 20110620
  7. VIDAZA [Suspect]
     Dosage: 75 MILLIGRAM/SQ. METER
     Route: 041
     Dates: start: 20111107, end: 20111115
  8. ZOVIRAX [Concomitant]
     Route: 065
     Dates: start: 20110414
  9. LANTUS [Concomitant]
     Route: 058
     Dates: start: 20110621
  10. PREDNISOLONE [Concomitant]
     Dosage: 5 MILLIGRAM
     Route: 048
  11. FLUCONAZOLE [Concomitant]
     Dosage: 100 MILLIGRAM
     Route: 048
     Dates: start: 20110419, end: 20110425
  12. HUMULIN N [Concomitant]
     Route: 058
     Dates: start: 20110422, end: 20110425
  13. VIDAZA [Suspect]
     Dosage: 75 MICROGRAM
     Route: 041
     Dates: start: 20110510, end: 20110518
  14. CEFAZOLIN SODIUM [Concomitant]
     Dosage: 2 GRAM
     Route: 048
     Dates: end: 20110425
  15. GLYCYRON [Concomitant]
  16. VIDAZA [Suspect]
     Indication: MYELODYSPLASTIC SYNDROME
     Dosage: 75 MILLIGRAM/SQ. METER
     Route: 041
     Dates: start: 20110404, end: 20110412
  17. CEREKINON [Concomitant]
     Dosage: 300 MILLIGRAM
     Route: 048
     Dates: start: 20110411
  18. HYALEIN [Concomitant]
     Route: 065
     Dates: start: 20110414
  19. LEVOFLOXACIN HYDRATE [Concomitant]
     Dosage: 300 MILLIGRAM
     Route: 048
     Dates: start: 20110419, end: 20110425
  20. PURSENNID [Concomitant]
     Route: 048
     Dates: start: 20110523
  21. HUMULIN R [Concomitant]
     Route: 058
     Dates: end: 20110421
  22. GLYCYRON [Concomitant]
  23. VIDAZA [Suspect]
     Dosage: 75 MILLIGRAM/SQ. METER
     Route: 041
     Dates: start: 20110906, end: 20110914

REACTIONS (5)
  - CONSTIPATION [None]
  - ALANINE AMINOTRANSFERASE INCREASED [None]
  - ASPARTATE AMINOTRANSFERASE INCREASED [None]
  - PLATELET COUNT DECREASED [None]
  - EYELID OEDEMA [None]
